FAERS Safety Report 5529685-3 (Version None)
Quarter: 2007Q4

REPORT INFORMATION
  Report Type: 
  Country: None (occurrence: None)
  Receive Date: 20071127
  Receipt Date: 20071112
  Transmission Date: 20080405
  Serious: Yes (Hospitalization)
  Sender: FDA-Public Use
  Company Number: 2007002218

PATIENT
  Age: 44 Year
  Sex: Female

DRUGS (9)
  1. ERLOTINIB (ERLOTINIB HCL) (TABLET) (ERLOTINIB HCL) [Suspect]
     Indication: COLON CANCER METASTATIC
     Dosage: 75 MG, QD, ORAL
     Route: 048
     Dates: start: 20070828
  2. VINFLUNINE (INJECTION FOR INFUSION) [Suspect]
     Indication: BREAST CANCER METASTATIC
     Dosage: 470 MG, INTRAVENOUS
     Route: 042
     Dates: start: 20070828
  3. FENTANYL PATCH (FENTANYL) [Concomitant]
  4. OXYCODONE HCL [Concomitant]
  5. KYTRIL [Concomitant]
  6. PROMETHAZINE [Concomitant]
  7. LEVSIN (HYOSCYAMINE SULFATE) [Concomitant]
  8. MORPHINE [Concomitant]
  9. DIAZEPAM [Concomitant]

REACTIONS (10)
  - ANOREXIA [None]
  - CONSTIPATION [None]
  - DEHYDRATION [None]
  - HAEMOGLOBIN DECREASED [None]
  - LETHARGY [None]
  - NAUSEA [None]
  - PLATELET COUNT DECREASED [None]
  - PNEUMONIA [None]
  - VOMITING [None]
  - WHITE BLOOD CELL COUNT DECREASED [None]
